FAERS Safety Report 16019728 (Version 1)
Quarter: 2019Q1

REPORT INFORMATION
  Report Type: Report from Study
  Country: ZA (occurrence: ZA)
  Receive Date: 20190228
  Receipt Date: 20190228
  Transmission Date: 20190418
  Serious: Yes (Other)
  Sender: FDA-Public Use
  Company Number: PHHY2018ZA129761

PATIENT
  Age: 41 Year
  Sex: Male

DRUGS (1)
  1. GILENYA [Suspect]
     Active Substance: FINGOLIMOD HYDROCHLORIDE
     Indication: RELAPSING-REMITTING MULTIPLE SCLEROSIS
     Dosage: 0.5 MG, UNK
     Route: 048
     Dates: start: 20181012

REACTIONS (8)
  - Blood pressure fluctuation [Unknown]
  - Blood pressure decreased [Recovering/Resolving]
  - Pupillary reflex impaired [Unknown]
  - Bradycardia [Unknown]
  - Headache [Recovering/Resolving]
  - Optic nerve disorder [Unknown]
  - Posterior capsule opacification [Unknown]
  - Visual acuity reduced [Unknown]

NARRATIVE: CASE EVENT DATE: 20181012
